FAERS Safety Report 10213981 (Version 1)
Quarter: 2014Q2

REPORT INFORMATION
  Report Type: Spontaneous
  Country: US (occurrence: None)
  Receive Date: 20140529
  Receipt Date: 20140529
  Transmission Date: 20141212
  Serious: Yes (Hospitalization)
  Sender: FDA-Public Use
  Company Number: E7389-03620-CLI-US

PATIENT
  Age: 72 Year
  Sex: Male
  Weight: 98 kg

DRUGS (39)
  1. ERIBULIN [Suspect]
     Indication: BLADDER CANCER
     Dosage: 2 IN 21 D
     Dates: start: 20130227
  2. GEMCITABINE (GEMCITABINE) [Suspect]
     Indication: BLADDER CANCER
     Dosage: 2 IN 21 D
     Dates: start: 20130227
  3. CISPLATIN (CISPLATIN) [Suspect]
     Indication: BLADDER CANCER
     Dosage: 1 IN 21 D
     Dates: start: 20130227
  4. ADVAIR DISKUS 250 - 50 MCG (SERETIDE /01420901/)) [Concomitant]
  5. ADVIL  200 MG (MEFENAMIC ACID) [Concomitant]
  6. APRIDRA (INSULIN GLULISINE) [Concomitant]
  7. ASTEPRO, AERO (AZELASTINE HYDROCHLORIDE) [Concomitant]
  8. COUMADIN (WARFARIN) [Concomitant]
  9. CRESTOR (ROSUVASTATIN) [Concomitant]
  10. VIT B-12 (CYANOCOBALAMIN) [Concomitant]
  11. DUONEB (COMBIVENT) [Concomitant]
  12. FINACEA (AZELAIC ACID) [Concomitant]
  13. GABAPENTIN (GABAPENTIN) [Concomitant]
  14. GLUCOPHAGE (METFORMIN) [Concomitant]
  15. HYDROCODONE [Concomitant]
  16. HYDROCORTISONE ACETATE [Concomitant]
  17. LEVEMIR, INJ (INSULIN DETEMIR) [Concomitant]
  18. ORACEA (DOXYCYCLINE) [Concomitant]
  19. PROAIR HFA, INM (SALBUTAMOL SULFATE) [Concomitant]
  20. PROTONIX (PANTOPRAZOLE) [Concomitant]
  21. PROZAC (FLUOXETINE) [Concomitant]
  22. TOPROL XL (METOPROLOL SUCCINATE) [Concomitant]
  23. TYLENOL (PARACETAMOL) [Concomitant]
  24. VITAMIN D (ERGOCALCIFEROL) [Concomitant]
  25. MIRALAX (MACROGOL) [Concomitant]
  26. DULCOLAX (BISACODYL) [Concomitant]
  27. PROCHLORPERAZINE (PROCHLORPERAZINE) [Concomitant]
  28. ZOFRAN (ONDANSETRON) [Concomitant]
  29. DEXAMETHASONE [Concomitant]
  30. LASIX (FUROSEMIDE) [Concomitant]
  31. KAOPECTATE (BISMUTH SUBSALICYLATE) [Concomitant]
  32. IMODIUM (LOPERAMIDE HYDROCHLORIDE) [Concomitant]
  33. BENADRYL ALLERGY (DIPHENHYDRAMINE HYDROCHLORIDE) [Concomitant]
  34. ONDANSETRON [Concomitant]
  35. SUDAFED (OXYMETAZOLINE HYDROCHLORIDE) [Concomitant]
  36. VERAMYST, AERO (FLUTICASONE FUROATE) [Concomitant]
  37. VICKS NYQUIL COUGH (NITE-TIME COLD MEDICINE) [Concomitant]
  38. AMOXIL (AMOXICILLIN) [Concomitant]
  39. NEURONTIN (GABAPENTIN) [Concomitant]

REACTIONS (5)
  - Hyponatraemia [None]
  - Hypomagnesaemia [None]
  - Urinary tract infection [None]
  - Anaemia [None]
  - Confusional state [None]
